FAERS Safety Report 18417910 (Version 1)
Quarter: 2020Q4

REPORT INFORMATION
  Report Type: Spontaneous
  Country: CZ (occurrence: CZ)
  Receive Date: 20201022
  Receipt Date: 20201022
  Transmission Date: 20210114
  Serious: Yes (Hospitalization, Disabling, Other)
  Sender: FDA-Public Use
  Company Number: CZ-ABBVIE-20K-217-3618200-00

PATIENT
  Age: 41 Year
  Sex: Female
  Weight: 91 kg

DRUGS (5)
  1. HUMIRA [Suspect]
     Active Substance: ADALIMUMAB
     Indication: RHEUMATOID ARTHRITIS
     Dosage: ONCE EVERY TWO WEEKS
     Route: 058
     Dates: start: 20200602, end: 20200728
  2. PYRIDOXIN [Concomitant]
     Active Substance: PYRIDOXINE
     Indication: PROPHYLAXIS
     Dosage: THE DOSAGE 1-0-0
     Route: 048
     Dates: start: 20200220, end: 20200820
  3. NIDRAZID [Concomitant]
     Active Substance: ISONIAZID
     Indication: PROPHYLACTIC CHEMOTHERAPY
     Dosage: THE DOSAGE 1-1-1
     Route: 048
     Dates: start: 20200220, end: 20200820
  4. SALAZOPYRIN [Concomitant]
     Active Substance: SULFASALAZINE
     Indication: RHEUMATOID ARTHRITIS
     Dosage: THE DOSAGE 1-0-1
     Route: 048
     Dates: start: 2015, end: 2020
  5. TREXAN [Concomitant]
     Indication: RHEUMATOID ARTHRITIS
     Dosage: UNTIL NOW
     Route: 048
     Dates: start: 20200420

REACTIONS (10)
  - Genital dysaesthesia [Recovering/Resolving]
  - Dysaesthesia [Recovering/Resolving]
  - Multiple sclerosis [Recovering/Resolving]
  - Micturition urgency [Recovering/Resolving]
  - Paraparesis [Recovering/Resolving]
  - Anal hypoaesthesia [Recovering/Resolving]
  - Visual impairment [Recovering/Resolving]
  - Hyperreflexia [Recovering/Resolving]
  - Demyelination [Recovering/Resolving]
  - Hypoaesthesia [Recovering/Resolving]

NARRATIVE: CASE EVENT DATE: 20200712
